FAERS Safety Report 17070089 (Version 1)
Quarter: 2019Q4

REPORT INFORMATION
  Report Type: Report from Study
  Country: IT (occurrence: IT)
  Receive Date: 20191125
  Receipt Date: 20191125
  Transmission Date: 20200122
  Serious: Yes (Hospitalization)
  Sender: FDA-Public Use
  Company Number: IT-BAXTER-2019BAX024007

PATIENT
  Age: 68 Year
  Sex: Female
  Weight: 92 kg

DRUGS (9)
  1. DOXIL [Suspect]
     Active Substance: DOXORUBICIN HYDROCHLORIDE
     Indication: OVARIAN CANCER RECURRENT
     Dosage: CYCLE 3
     Route: 042
     Dates: start: 20180918
  2. ADENOSYLMETHIONINE [Concomitant]
     Indication: DEPRESSION
     Route: 048
  3. DEURSIL [Concomitant]
     Active Substance: URSODIOL
     Indication: PROPHYLAXIS
     Route: 048
  4. RASILEZ [Concomitant]
     Active Substance: ALISKIREN
     Indication: HYPERTENSION
     Route: 048
  5. PANTORC [Concomitant]
     Active Substance: PANTOPRAZOLE SODIUM
     Indication: PRODUCT USED FOR UNKNOWN INDICATION
     Dosage: --2010. TWICE A DAY FOR MONTH
     Route: 065
  6. TRABECTEDIN [Suspect]
     Active Substance: TRABECTEDIN
     Indication: OVARIAN CANCER RECURRENT
     Dosage: CYCLE 3
     Route: 042
     Dates: start: 20180918
  7. CORLENTOR [Concomitant]
     Active Substance: IVABRADINE HYDROCHLORIDE
     Indication: HYPERTENSION
     Route: 048
  8. BISOPROLOL FUMARATE. [Concomitant]
     Active Substance: BISOPROLOL FUMARATE
     Indication: PRODUCT USED FOR UNKNOWN INDICATION
     Route: 065
     Dates: start: 2010
  9. SINGULAIR [Concomitant]
     Active Substance: MONTELUKAST SODIUM
     Indication: ASTHMA
     Route: 048

REACTIONS (5)
  - Dyspnoea [Recovered/Resolved]
  - Gastrooesophageal reflux disease [Recovered/Resolved]
  - Fatigue [Recovered/Resolved]
  - Dysphonia [Recovered/Resolved]
  - Dysphagia [Recovered/Resolved]

NARRATIVE: CASE EVENT DATE: 20180930
